FAERS Safety Report 14036889 (Version 1)
Quarter: 2017Q4

REPORT INFORMATION
  Report Type: Spontaneous
  Country: IN (occurrence: IN)
  Receive Date: 20171004
  Receipt Date: 20171004
  Transmission Date: 20180321
  Serious: Yes (Other)
  Sender: FDA-Public Use
  Company Number: IN-IPCA LABORATORIES LIMITED-IPC-2017-IN-003117

PATIENT
  Age: 28 Year
  Sex: Female

DRUGS (3)
  1. TRAMADOL. [Suspect]
     Active Substance: TRAMADOL
     Indication: MUSCULOSKELETAL PAIN
     Dosage: 50 MG/1 ML 6-7 MONTHS 2-3 DAYS ONCE
  2. TRAMADOL. [Suspect]
     Active Substance: TRAMADOL
     Dosage: 300 MG PER DAY
  3. DICLOFENAC [Suspect]
     Active Substance: DICLOFENAC
     Indication: MUSCULOSKELETAL PAIN

REACTIONS (6)
  - Injection site abscess [Unknown]
  - Cold sweat [Unknown]
  - Drug dependence [Unknown]
  - Withdrawal syndrome [Unknown]
  - Unresponsive to stimuli [Unknown]
  - Overdose [Unknown]
